FAERS Safety Report 7549269-5 (Version None)
Quarter: 2011Q2

REPORT INFORMATION
  Report Type: 
  Country: None (occurrence: None)
  Receive Date: 20110615
  Receipt Date: 20110610
  Transmission Date: 20111010
  Serious: Yes (Death)
  Sender: FDA-Public Use
  Company Number: PHHY2011VN51597

PATIENT
  Sex: Female
  Weight: 55 kg

DRUGS (2)
  1. BIPHENYL DICARBOXYLATE [Concomitant]
     Indication: HEPATIC ENZYME ABNORMAL
     Dosage: 75 MG, DAILY
     Route: 048
     Dates: start: 20110425
  2. GLEEVEC [Suspect]
     Indication: GASTROINTESTINAL STROMAL TUMOUR
     Dosage: 400 MG, DAILY
     Route: 048
     Dates: start: 20110425

REACTIONS (3)
  - GENERAL PHYSICAL HEALTH DETERIORATION [None]
  - FATIGUE [None]
  - DEATH [None]
